FAERS Safety Report 5874543-8 (Version None)
Quarter: 2008Q3

REPORT INFORMATION
  Report Type: 
  Country: None (occurrence: None)
  Receive Date: 20080909
  Receipt Date: 20080901
  Transmission Date: 20090109
  Serious: Yes (Hospitalization, Other)
  Sender: FDA-Public Use
  Company Number: PHHO2007FR19988

PATIENT
  Sex: Male
  Weight: 90 kg

DRUGS (1)
  1. TASIGNA [Suspect]
     Indication: CHRONIC MYELOID LEUKAEMIA
     Dosage: 800 MG, QD
     Route: 048
     Dates: start: 20070402, end: 20071201

REACTIONS (7)
  - ANGINA PECTORIS [None]
  - CORONARY ARTERY STENOSIS [None]
  - DYSPNOEA [None]
  - ELECTROCARDIOGRAM T WAVE AMPLITUDE DECREASED [None]
  - STENT PLACEMENT [None]
  - TROPONIN INCREASED [None]
  - VENTRICULAR TACHYCARDIA [None]
